FAERS Safety Report 10370318 (Version 9)
Quarter: 2018Q3

REPORT INFORMATION
  Report Type: Spontaneous
  Country: US (occurrence: US)
  Receive Date: 20140808
  Receipt Date: 20180809
  Transmission Date: 20181010
  Serious: Yes (Hospitalization, Other)
  Sender: FDA-Public Use
  Company Number: US-ELI_LILLY_AND_COMPANY-US201407011503

PATIENT
  Age: 74 Year
  Sex: Male

DRUGS (96)
  1. ZYPREXA [Suspect]
     Active Substance: OLANZAPINE
     Dosage: 7.5 MG, EACH EVENING
     Route: 048
     Dates: start: 20080718, end: 20080721
  2. ZYPREXA [Suspect]
     Active Substance: OLANZAPINE
     Dosage: 5 MG, EACH EVENING
     Route: 048
  3. LORAZEPAM. [Concomitant]
     Active Substance: LORAZEPAM
     Dosage: 0.5 MG, EVERY 4 HRS
     Route: 048
  4. DOCUSATE [Concomitant]
     Active Substance: DOCUSATE
     Dosage: 100 MG, EVERY 8 HRS
     Route: 048
  5. LOPERAMIDE [Concomitant]
     Active Substance: LOPERAMIDE
     Indication: PRODUCT USED FOR UNKNOWN INDICATION
     Dosage: 2 MG, PRN
     Route: 048
  6. LITHIUM. [Concomitant]
     Active Substance: LITHIUM
     Indication: PRODUCT USED FOR UNKNOWN INDICATION
     Dosage: 450 MG, EACH EVENING
     Route: 048
     Dates: start: 20051014
  7. LITHIUM. [Concomitant]
     Active Substance: LITHIUM
     Dosage: 300 MG, EACH EVENING
     Route: 048
     Dates: start: 20051031
  8. ATENOLOL. [Concomitant]
     Active Substance: ATENOLOL
     Indication: PRODUCT USED FOR UNKNOWN INDICATION
     Dosage: 100 MG, QD
     Route: 048
  9. ZYPREXA [Suspect]
     Active Substance: OLANZAPINE
     Dosage: 5 MG, EACH EVENING
     Route: 048
     Dates: start: 20090630
  10. LORAZEPAM. [Concomitant]
     Active Substance: LORAZEPAM
     Dosage: 0.5 MG, QID
     Route: 048
  11. LORAZEPAM. [Concomitant]
     Active Substance: LORAZEPAM
     Dosage: 0.5 MG, TID
     Route: 048
  12. QUETIAPINE FUMARATE. [Concomitant]
     Active Substance: QUETIAPINE FUMARATE
     Dosage: 100 MG, EACH MORNING
     Route: 048
  13. MILK OF MAGNESIA [Concomitant]
     Active Substance: MAGNESIUM HYDROXIDE
     Dosage: 30 ML, EACH EVENING
     Route: 048
  14. HIDROX. ALUM. + HIDROX. MAGNE. + SIMETI. [Concomitant]
     Indication: DYSPEPSIA
     Dosage: 30 ML, PRN
     Route: 048
  15. CIPROFLOXACIN HCL [Concomitant]
     Active Substance: CIPROFLOXACIN HYDROCHLORIDE
     Indication: INFECTION
     Dosage: 500 MG, BID
     Route: 048
  16. TRAZODONE [Concomitant]
     Active Substance: TRAZODONE HYDROCHLORIDE
     Dosage: 50 MG, PRN
     Route: 048
  17. SORBITOL. [Concomitant]
     Active Substance: SORBITOL
     Indication: PRODUCT USED FOR UNKNOWN INDICATION
     Dosage: UNK, SINGLE
     Route: 048
  18. ATENOLOL. [Concomitant]
     Active Substance: ATENOLOL
     Dosage: 25 MG, QD
     Route: 048
  19. ZYPREXA [Suspect]
     Active Substance: OLANZAPINE
     Dosage: 12.5 MG, EACH EVENING
     Route: 048
     Dates: start: 20051110, end: 200512
  20. ZYPREXA [Suspect]
     Active Substance: OLANZAPINE
     Dosage: 5 MG, EACH EVENING
     Route: 048
     Dates: start: 20080716, end: 20080718
  21. ZYPREXA [Suspect]
     Active Substance: OLANZAPINE
     Dosage: 12.5 MG, EACH EVENING
     Route: 048
     Dates: start: 20080728, end: 20080731
  22. ZYPREXA [Suspect]
     Active Substance: OLANZAPINE
     Dosage: 20 MG, EACH EVENING
     Route: 048
     Dates: start: 20080829, end: 20080911
  23. LATANOPROST. [Concomitant]
     Active Substance: LATANOPROST
     Indication: GLAUCOMA
     Dosage: 1 GTT, QD
     Route: 047
  24. PREDNISOLONE ACETATE. [Concomitant]
     Active Substance: PREDNISOLONE ACETATE
     Indication: PRODUCT USED FOR UNKNOWN INDICATION
     Dosage: 1 GTT, QID
     Route: 047
  25. PAROXETINE. [Concomitant]
     Active Substance: PAROXETINE
     Dosage: 50 MG, EACH MORNING
     Route: 048
  26. KETOROLAC TROMETHAMINE. [Concomitant]
     Active Substance: KETOROLAC TROMETHAMINE
     Indication: PRODUCT USED FOR UNKNOWN INDICATION
     Dosage: 1 GTT, QID
     Route: 047
  27. LORAZEPAM. [Concomitant]
     Active Substance: LORAZEPAM
     Dosage: 1 MG, BID
  28. LORAZEPAM. [Concomitant]
     Active Substance: LORAZEPAM
     Dosage: 0.5 MG, EVERY 6 HRS
     Route: 048
  29. LORAZEPAM. [Concomitant]
     Active Substance: LORAZEPAM
     Dosage: 0.5 MG, EACH EVENING
     Route: 048
  30. ZOLPIDEM [Concomitant]
     Active Substance: ZOLPIDEM\ZOLPIDEM TARTRATE
     Indication: INSOMNIA
     Dosage: 10 MG, EACH EVENING
     Route: 048
  31. MILK OF MAGNESIA [Concomitant]
     Active Substance: MAGNESIUM HYDROXIDE
     Indication: CONSTIPATION
     Dosage: 30 ML, EVERY 6 HRS
     Route: 048
  32. ACETAMINOPHEN. [Concomitant]
     Active Substance: ACETAMINOPHEN
     Indication: PAIN
     Dosage: 325 MG, BID
     Route: 048
  33. PSYLLIUM HYDROPHILIC MUCILLOID [Concomitant]
     Active Substance: PSYLLIUM HUSK
     Indication: PRODUCT USED FOR UNKNOWN INDICATION
     Dosage: 1 DF, BID
     Route: 048
  34. ZYPREXA [Suspect]
     Active Substance: OLANZAPINE
     Dosage: 10 MG, EACH EVENING
     Route: 048
     Dates: start: 200512
  35. ZYPREXA [Suspect]
     Active Substance: OLANZAPINE
     Dosage: 2.5 MG, EACH EVENING
     Route: 048
     Dates: start: 20121210
  36. DORZOLAMIDE AND TIMOLOL [Concomitant]
     Active Substance: DORZOLAMIDE\TIMOLOL
     Indication: PRODUCT USED FOR UNKNOWN INDICATION
     Dosage: 1 GTT, BID
     Route: 047
     Dates: start: 20131101
  37. PAROXETINE. [Concomitant]
     Active Substance: PAROXETINE
     Dosage: 60 MG, EACH MORNING
     Route: 048
  38. PAROXETINE. [Concomitant]
     Active Substance: PAROXETINE
     Dosage: 10 MG, EACH MORNING
     Route: 048
  39. PAROXETINE. [Concomitant]
     Active Substance: PAROXETINE
     Dosage: 20 MG, EACH MORNING
     Route: 048
  40. LORAZEPAM. [Concomitant]
     Active Substance: LORAZEPAM
     Dosage: 1 MG, TID
     Route: 048
  41. RISPERIDONE. [Concomitant]
     Active Substance: RISPERIDONE
     Indication: PRODUCT USED FOR UNKNOWN INDICATION
     Dosage: 0.5 MG, EACH EVENING
     Route: 048
  42. MIRTAZAPINE. [Concomitant]
     Active Substance: MIRTAZAPINE
     Dosage: 30 MG, EACH EVENING
     Route: 048
  43. LOPERAMIDE [Concomitant]
     Active Substance: LOPERAMIDE
     Dosage: UNK, EVERY HOUR
     Route: 048
  44. VENLAFAXINE [Concomitant]
     Active Substance: VENLAFAXINE HYDROCHLORIDE
     Dosage: 112.5 MG, QD
     Route: 048
  45. VENLAFAXINE [Concomitant]
     Active Substance: VENLAFAXINE HYDROCHLORIDE
     Dosage: 37.5 MG, QD
     Route: 048
  46. CLONAZEPAM. [Concomitant]
     Active Substance: CLONAZEPAM
     Indication: PRODUCT USED FOR UNKNOWN INDICATION
     Dosage: 0.5 MG, BID
     Route: 048
  47. ASPIRIN                            /00002701/ [Concomitant]
     Active Substance: ASPIRIN
     Indication: PAIN
     Dosage: 81 MG, EACH EVENING
     Route: 048
  48. GUAIFENESIN. [Concomitant]
     Active Substance: GUAIFENESIN
     Indication: PRODUCT USED FOR UNKNOWN INDICATION
     Dosage: 5 ML, EVERY 8 HRS
     Route: 048
  49. PAROXETINE. [Concomitant]
     Active Substance: PAROXETINE
     Indication: DEPRESSION
     Dosage: 20 MG, EACH EVENING
     Route: 048
  50. PAROXETINE. [Concomitant]
     Active Substance: PAROXETINE
     Dosage: 30 MG, EACH MORNING
     Route: 048
  51. ASPIRIN                            /00002701/ [Concomitant]
     Active Substance: ASPIRIN
     Indication: PYREXIA
     Dosage: 325 MG, EVERY 4 HRS
     Route: 048
  52. PSEUDOEPHEDRINE HCL [Concomitant]
     Active Substance: PSEUDOEPHEDRINE HYDROCHLORIDE
     Indication: PRODUCT USED FOR UNKNOWN INDICATION
     Dosage: 30 MG, EVERY 6 HRS
     Route: 048
  53. ZYPREXA [Suspect]
     Active Substance: OLANZAPINE
     Dosage: 10 MG, EACH EVENING
     Route: 048
     Dates: start: 20051101, end: 20051107
  54. ZYPREXA [Suspect]
     Active Substance: OLANZAPINE
     Dosage: 15 MG, EACH EVENING
     Route: 048
     Dates: start: 20080731, end: 20080804
  55. DORZOLAMIDE [Concomitant]
     Active Substance: DORZOLAMIDE
     Indication: PRODUCT USED FOR UNKNOWN INDICATION
     Dosage: 1 GTT, BID
     Route: 047
  56. PAROXETINE. [Concomitant]
     Active Substance: PAROXETINE
     Dosage: 40 MG, QD
     Route: 048
  57. FINASTERIDE. [Concomitant]
     Active Substance: FINASTERIDE
     Indication: PROSTATE EXAMINATION
     Dosage: 5 MG, QD
     Route: 048
  58. QUETIAPINE FUMARATE. [Concomitant]
     Active Substance: QUETIAPINE FUMARATE
     Indication: PRODUCT USED FOR UNKNOWN INDICATION
     Dosage: 50 MG, EACH MORNING
     Route: 048
  59. QUETIAPINE FUMARATE. [Concomitant]
     Active Substance: QUETIAPINE FUMARATE
     Dosage: 25 MG, EACH EVENING
     Route: 048
  60. DOCUSATE [Concomitant]
     Active Substance: DOCUSATE
     Indication: FAECES HARD
     Dosage: 100 MG, BID
     Route: 048
  61. RISPERIDONE. [Concomitant]
     Active Substance: RISPERIDONE
     Dosage: 0.5 MG, BID
     Route: 048
  62. RISPERIDONE. [Concomitant]
     Active Substance: RISPERIDONE
     Dosage: 0.5 MG, EVERY 4 HRS
     Route: 048
  63. RISPERIDONE. [Concomitant]
     Active Substance: RISPERIDONE
     Dosage: 1 MG, TID
     Route: 048
  64. BUSPIRONE HCL [Concomitant]
     Active Substance: BUSPIRONE HYDROCHLORIDE
     Indication: PRODUCT USED FOR UNKNOWN INDICATION
     Dosage: 5 MG, TID
  65. MIRTAZAPINE. [Concomitant]
     Active Substance: MIRTAZAPINE
     Indication: PRODUCT USED FOR UNKNOWN INDICATION
     Dosage: 15 MG, EACH EVENING
     Route: 048
  66. VENLAFAXINE [Concomitant]
     Active Substance: VENLAFAXINE HYDROCHLORIDE
     Indication: DEPRESSION
     Dosage: 75 MG, QD
     Route: 048
  67. VENLAFAXINE [Concomitant]
     Active Substance: VENLAFAXINE HYDROCHLORIDE
     Dosage: 37.5 MG, BID
     Route: 065
  68. CLONAZEPAM. [Concomitant]
     Active Substance: CLONAZEPAM
     Dosage: 0.5 MG, TID
     Route: 048
  69. LITHIUM. [Concomitant]
     Active Substance: LITHIUM
     Dosage: 600 MG, EACH EVENING
     Route: 048
     Dates: start: 20051024
  70. ZYPREXA [Suspect]
     Active Substance: OLANZAPINE
     Indication: DEPRESSION
     Dosage: 10 MG, EACH EVENING
     Route: 048
     Dates: start: 20051014, end: 20051101
  71. ZYPREXA [Suspect]
     Active Substance: OLANZAPINE
     Indication: BIPOLAR II DISORDER
     Dosage: 7.5 MG, EACH EVENING
     Route: 048
     Dates: start: 20051101, end: 20051101
  72. ZYPREXA [Suspect]
     Active Substance: OLANZAPINE
     Dosage: 2.5 MG, BID
     Route: 048
     Dates: start: 20070410
  73. ZYPREXA [Suspect]
     Active Substance: OLANZAPINE
     Dosage: 2.5 MG, BID
     Route: 065
     Dates: start: 20080711, end: 20080711
  74. ZYPREXA [Suspect]
     Active Substance: OLANZAPINE
     Dosage: 10 MG, EACH EVENING
     Route: 048
     Dates: start: 20080721, end: 20080728
  75. ZYPREXA [Suspect]
     Active Substance: OLANZAPINE
     Dosage: 17.5 MG, EACH EVENING
     Route: 048
     Dates: start: 20080804, end: 20080829
  76. ZYPREXA [Suspect]
     Active Substance: OLANZAPINE
     Dosage: 5 MG, EACH EVENING
     Route: 048
     Dates: start: 20081216
  77. ZYPREXA [Suspect]
     Active Substance: OLANZAPINE
     Dosage: 10 MG, EACH EVENING
     Route: 065
     Dates: start: 20081231
  78. ZYPREXA [Suspect]
     Active Substance: OLANZAPINE
     Dosage: 10 MG, EACH EVENING
     Route: 048
     Dates: start: 20110322
  79. BRIMONIDINE TARTRATE. [Concomitant]
     Active Substance: BRIMONIDINE TARTRATE
     Indication: PRODUCT USED FOR UNKNOWN INDICATION
     Dosage: 1 GTT, BID
     Route: 047
  80. TRAVOPROST. [Concomitant]
     Active Substance: TRAVOPROST
     Indication: GLAUCOMA
     Dosage: 1 DF, EACH EVENING
     Route: 047
  81. LORAZEPAM. [Concomitant]
     Active Substance: LORAZEPAM
     Indication: ANXIETY
     Dosage: 0.5 MG, BID
     Route: 048
  82. BARIUM SULFATE [Concomitant]
     Active Substance: BARIUM SULFATE
     Indication: COMPUTERISED TOMOGRAM
     Dosage: 2 DF, SINGLE
     Route: 048
  83. SIMVASTATIN. [Concomitant]
     Active Substance: SIMVASTATIN
     Indication: BLOOD CHOLESTEROL INCREASED
     Dosage: 20 MG, EACH EVENING
     Route: 048
  84. QUETIAPINE FUMARATE. [Concomitant]
     Active Substance: QUETIAPINE FUMARATE
     Dosage: 25 MG, BID
     Route: 048
  85. ZOLPIDEM [Concomitant]
     Active Substance: ZOLPIDEM\ZOLPIDEM TARTRATE
     Dosage: 5 MG, EACH EVENING
     Route: 048
  86. ATENOLOL. [Concomitant]
     Active Substance: ATENOLOL
     Dosage: 50 MG, QD
     Route: 048
  87. PAROXETINE. [Concomitant]
     Active Substance: PAROXETINE
     Indication: ANXIETY
     Dosage: 10 MG, EACH EVENING
     Route: 048
  88. MOXIFLOXACIN HCL [Concomitant]
     Active Substance: MOXIFLOXACIN
     Indication: PRODUCT USED FOR UNKNOWN INDICATION
     Dosage: 1 GTT, QID
     Route: 047
  89. LORAZEPAM. [Concomitant]
     Active Substance: LORAZEPAM
     Indication: NERVOUSNESS
     Dosage: 1 DF, BID
  90. RISPERIDONE. [Concomitant]
     Active Substance: RISPERIDONE
     Dosage: 0.25 MG, EVERY 4 HRS
     Route: 048
  91. MULTIVITAMIN                       /00097801/ [Concomitant]
     Active Substance: VITAMINS
     Indication: NUTRITIONAL SUPPLEMENTATION
     Dosage: 1 DF, QD
     Route: 048
  92. MIRTAZAPINE. [Concomitant]
     Active Substance: MIRTAZAPINE
     Dosage: 7.5 MG, EACH EVENING
     Route: 048
  93. LOPERAMIDE [Concomitant]
     Active Substance: LOPERAMIDE
     Dosage: 4 MG, SINGLE
     Route: 048
  94. VENLAFAXINE [Concomitant]
     Active Substance: VENLAFAXINE HYDROCHLORIDE
     Dosage: 150 MG, QD
     Route: 048
  95. IPRATROPIUM BROMIDE. [Concomitant]
     Active Substance: IPRATROPIUM BROMIDE
     Indication: PRODUCT USED FOR UNKNOWN INDICATION
     Dosage: 2 DF, PRN
     Route: 055
  96. TRAZODONE [Concomitant]
     Active Substance: TRAZODONE HYDROCHLORIDE
     Indication: INSOMNIA
     Dosage: 100 MG, PRN
     Route: 048

REACTIONS (47)
  - Pain [Unknown]
  - Food craving [Unknown]
  - Cataract [Unknown]
  - Photosensitivity reaction [Unknown]
  - Concussion [Unknown]
  - Bone pain [Unknown]
  - Oesophagitis [Unknown]
  - Macrocytosis [Unknown]
  - Balance disorder [Unknown]
  - Pollakiuria [Unknown]
  - Nasal congestion [Recovered/Resolved]
  - Paraesthesia [Unknown]
  - Sedation [Unknown]
  - Head discomfort [Unknown]
  - Dizziness [Unknown]
  - Glaucoma [Not Recovered/Not Resolved]
  - Flatulence [Recovered/Resolved]
  - Faecaloma [Unknown]
  - Amnesia [Unknown]
  - Asthenia [Not Recovered/Not Resolved]
  - Pruritus [Unknown]
  - Weight increased [Unknown]
  - Loss of consciousness [Unknown]
  - Blindness unilateral [Not Recovered/Not Resolved]
  - Extraocular muscle paresis [Not Recovered/Not Resolved]
  - Gait disturbance [Not Recovered/Not Resolved]
  - Muscular weakness [Not Recovered/Not Resolved]
  - Anal incontinence [Recovered/Resolved]
  - Tremor [Unknown]
  - Akathisia [Unknown]
  - Atrial fibrillation [Unknown]
  - Neck pain [Unknown]
  - Mouth ulceration [Unknown]
  - Speech disorder [Unknown]
  - Anxiety [Unknown]
  - Leukopenia [Not Recovered/Not Resolved]
  - Somnolence [Recovered/Resolved]
  - Sluggishness [Unknown]
  - Bipolar disorder [Unknown]
  - Myalgia [Not Recovered/Not Resolved]
  - Joint stiffness [Unknown]
  - Appetite disorder [Unknown]
  - Micturition urgency [Unknown]
  - Hypotension [Recovered/Resolved]
  - Muscle spasms [Unknown]
  - Faeces discoloured [Unknown]
  - Diarrhoea [Unknown]

NARRATIVE: CASE EVENT DATE: 2006
